FAERS Safety Report 8968991 (Version 1)
Quarter: 2012Q4

REPORT INFORMATION
  Report Type: 
  Country: US (occurrence: US)
  Receive Date: 20121218
  Receipt Date: 20121218
  Transmission Date: 20130627
  Serious: No
  Sender: FDA-Public Use
  Company Number: US-BRISTOL-MYERS SQUIBB COMPANY-16341877

PATIENT
  Age: 17 Year
  Sex: Female

DRUGS (2)
  1. ABILIFY [Suspect]
     Indication: MAJOR DEPRESSION
     Route: 048
     Dates: start: 20111207, end: 20120103
  2. LEXAPRO [Suspect]
     Route: 048

REACTIONS (3)
  - Hepatic enzyme increased [Recovered/Resolved]
  - Nausea [Unknown]
  - Malaise [Unknown]
